FAERS Safety Report 8915796 (Version 2)
Quarter: 2012Q4

REPORT INFORMATION
  Report Type: 
  Country: IT (occurrence: IT)
  Receive Date: 20121119
  Receipt Date: 20121121
  Transmission Date: 20130627
  Serious: Yes (Hospitalization)
  Sender: FDA-Public Use
  Company Number: IT-PFIZER INC-2012289235

PATIENT
  Age: 80 Year
  Sex: Female

DRUGS (5)
  1. FRONTAL [Suspect]
     Dosage: 0.5 mg, 1x/day
     Route: 048
     Dates: start: 20110101, end: 20121014
  2. VALIUM [Suspect]
     Indication: JITTERINESS
     Dosage: 0.05 DF total dose
     Route: 030
     Dates: start: 20121014, end: 20121014
  3. SEROQUEL [Concomitant]
     Indication: PSYCHOSIS
     Dosage: 150 mg, UNK
  4. HUMULIN [Concomitant]
     Indication: TYPE 2 DIABETES MELLITUS
     Dosage: UNK
  5. GABAPENTIN [Concomitant]
     Indication: PSYCHOSIS
     Dosage: UNK

REACTIONS (2)
  - Sopor [Recovering/Resolving]
  - Toxicity to various agents [Recovering/Resolving]
